FAERS Safety Report 9855411 (Version 3)
Quarter: 2014Q4

REPORT INFORMATION
  Report Type: Spontaneous
  Country: US (occurrence: US)
  Receive Date: 20140130
  Receipt Date: 20141030
  Transmission Date: 20150529
  Serious: Yes (Hospitalization)
  Sender: FDA-Public Use
  Company Number: US-BAYER-2014-012258

PATIENT
  Age: 28 Year
  Sex: Female
  Weight: 65.76 kg

DRUGS (2)
  1. DEPO-PROVERA [Concomitant]
     Active Substance: MEDROXYPROGESTERONE ACETATE
  2. MIRENA [Suspect]
     Active Substance: LEVONORGESTREL
     Indication: CONTRACEPTION
     Dosage: 20 MCG/24HR, CONT
     Route: 015
     Dates: start: 20090407, end: 20130212

REACTIONS (7)
  - Device dislocation [None]
  - Pregnancy with contraceptive device [None]
  - Injury [None]
  - Medical device discomfort [None]
  - Abortion spontaneous [None]
  - Drug ineffective [None]
  - Medical device pain [None]

NARRATIVE: CASE EVENT DATE: 20100113
